FAERS Safety Report 11722626 (Version 2)
Quarter: 2016Q2

REPORT INFORMATION
  Report Type: Spontaneous
  Country: US (occurrence: US)
  Receive Date: 20151111
  Receipt Date: 20160412
  Transmission Date: 20160815
  Serious: Yes (Life-Threatening, Hospitalization, Other)
  Sender: FDA-Public Use
  Company Number: US-PFIZER INC-2015384033

PATIENT
  Age: 46 Year
  Sex: Male

DRUGS (5)
  1. DEPO-TESTOSTERONE [Suspect]
     Active Substance: TESTOSTERONE CYPIONATE
     Dosage: UNK, AS NEEDED (MULTIPLE TIMES PER MONTH)
     Dates: start: 2015
  2. AXIRON [Suspect]
     Active Substance: TESTOSTERONE
     Indication: HORMONE REPLACEMENT THERAPY
     Dosage: UNK, DAILY
     Dates: start: 2011, end: 2013
  3. ANDROGEL [Suspect]
     Active Substance: TESTOSTERONE
     Indication: HORMONE REPLACEMENT THERAPY
     Dosage: UNK, DAILY
     Dates: start: 2005, end: 2010
  4. TESTOPEL [Suspect]
     Active Substance: TESTOSTERONE
     Indication: HORMONE REPLACEMENT THERAPY
     Dosage: UNK, ONE INJECTION
     Dates: start: 2014
  5. DEPO-TESTOSTERONE [Suspect]
     Active Substance: TESTOSTERONE CYPIONATE
     Indication: HORMONE REPLACEMENT THERAPY
     Dosage: UNK, AS NEEDED (MULTIPLE TIMES PER MONTH)
     Dates: end: 2004

REACTIONS (10)
  - Memory impairment [Not Recovered/Not Resolved]
  - Cognitive disorder [Not Recovered/Not Resolved]
  - Stress [Unknown]
  - Cardiac arrest [Unknown]
  - Coma [Unknown]
  - Anger [Unknown]
  - Myocardial infarction [Unknown]
  - Anoxia [Unknown]
  - Vascular occlusion [Unknown]
  - Coronary artery disease [Unknown]

NARRATIVE: CASE EVENT DATE: 200308
